FAERS Safety Report 10855639 (Version 1)
Quarter: 2015Q1

REPORT INFORMATION
  Report Type: Spontaneous
  Country: US (occurrence: None)
  Receive Date: 20150218
  Receipt Date: 20150218
  Transmission Date: 20150721
  Serious: Yes (Death)
  Sender: FDA-Public Use
  Company Number: None

PATIENT
  Age: 92 Year
  Sex: Female
  Weight: 99.8 kg

DRUGS (1)
  1. WARFARIN [Suspect]
     Active Substance: WARFARIN
     Indication: ATRIAL FIBRILLATION
     Dosage: YEARS QD ORAL
     Route: 048

REACTIONS (3)
  - Post procedural haemorrhage [None]
  - Haematemesis [None]
  - Unresponsive to stimuli [None]

NARRATIVE: CASE EVENT DATE: 20150119
